FAERS Safety Report 7969331-2 (Version None)
Quarter: 2011Q4

REPORT INFORMATION
  Report Type: 
  Country: None (occurrence: None)
  Receive Date: 20111209
  Receipt Date: 20111129
  Transmission Date: 20120403
  Serious: Yes (Other)
  Sender: FDA-Public Use
  Company Number: JP-ASTRAZENECA-2011SE73964

PATIENT
  Age: 20 Year
  Sex: Male

DRUGS (1)
  1. MEROPENEM [Suspect]
     Indication: INFECTION
     Route: 042

REACTIONS (1)
  - ANAPHYLACTIC REACTION [None]
